FAERS Safety Report 20221014 (Version 6)
Quarter: 2023Q2

REPORT INFORMATION
  Report Type: Spontaneous
  Country: DE (occurrence: DE)
  Receive Date: 20211223
  Receipt Date: 20230410
  Transmission Date: 20230721
  Serious: Yes (Other)
  Sender: FDA-Public Use
  Company Number: DE-002147023-NVSC2020DE220513

PATIENT
  Sex: Female
  Weight: 57 kg

DRUGS (10)
  1. LETROZOLE [Suspect]
     Active Substance: LETROZOLE
     Indication: Breast cancer metastatic
     Dosage: 2.5 MG, QD
     Route: 048
     Dates: start: 20200708, end: 20200827
  2. KISQALI [Suspect]
     Active Substance: RIBOCICLIB
     Indication: Breast cancer metastatic
     Dosage: 600 MILLIGRAM, ONCE A DAY (SCHEMA 21 DAYS INTAKE, 7 DAYS PAUSE)
     Route: 048
     Dates: start: 20200708, end: 20200803
  3. KISQALI [Suspect]
     Active Substance: RIBOCICLIB
     Dosage: 600 MILLIGRAM, ONCE A DAY(SCHEMA 21 DAYS INTAKE, 7 DAYS PAUSE) (LAST DOSE ON 16-AUG-2020)
     Route: 048
     Dates: start: 20200811, end: 20200816
  4. KISQALI [Suspect]
     Active Substance: RIBOCICLIB
     Dosage: 600 MILLIGRAM, ONCE A DAY,(SCHEMA 21 DAYS INTAKE, 7 DAYS PAUSE) (LAST DOSE ON 16-AUG-2020)
     Route: 048
     Dates: start: 20200824, end: 20200827
  5. PALBOCICLIB ISETHIONATE [Suspect]
     Active Substance: PALBOCICLIB ISETHIONATE
     Indication: Breast cancer metastatic
     Dosage: 125 MILLIGRAM, ONCE A DAY
     Route: 065
     Dates: start: 20200915
  6. PALBOCICLIB ISETHIONATE [Suspect]
     Active Substance: PALBOCICLIB ISETHIONATE
     Dosage: 125 MILLIGRAM, ONCE A DAY((SCHEME 21 DAYS INTAKE, 7 DAYS PAUSE))
     Route: 048
     Dates: start: 20210707, end: 20210727
  7. PALBOCICLIB ISETHIONATE [Suspect]
     Active Substance: PALBOCICLIB ISETHIONATE
     Dosage: 100 MILLIGRAM, ONCE A DAY (100 MG, QD (SCHEME 21 DAYS INTAKE, 7 DAYS PAUSE) )
     Route: 048
     Dates: start: 20210811, end: 20220124
  8. PALBOCICLIB ISETHIONATE [Suspect]
     Active Substance: PALBOCICLIB ISETHIONATE
     Dosage: 100 MILLIGRAM, ONCE A DAY
     Route: 048
     Dates: start: 20220201, end: 20220314
  9. PALBOCICLIB ISETHIONATE [Suspect]
     Active Substance: PALBOCICLIB ISETHIONATE
     Dosage: 75 MILLIGRAM, ONCE A DAY
     Route: 048
     Dates: start: 20220315, end: 20220502
  10. PALBOCICLIB ISETHIONATE [Suspect]
     Active Substance: PALBOCICLIB ISETHIONATE
     Dosage: 75 MILLIGRAM, ONCE A DAY (SCHEME 21 DAYS INTAKE, 7 DAYS PAUSE)
     Route: 048
     Dates: start: 20220511

REACTIONS (12)
  - Neutropenia [Recovered/Resolved]
  - Leukopenia [Recovering/Resolving]
  - Thrombocytopenia [Recovered/Resolved]
  - Alopecia [Recovered/Resolved]
  - Conjunctivitis [Recovered/Resolved with Sequelae]
  - Dry eye [Not Recovered/Not Resolved]
  - Pain [Recovered/Resolved]
  - Eastern Cooperative Oncology Group performance status worsened [Unknown]
  - Herpes zoster [Recovered/Resolved]
  - Peripheral swelling [Recovered/Resolved]
  - Rash [Not Recovered/Not Resolved]
  - Urinary tract infection [Recovered/Resolved]

NARRATIVE: CASE EVENT DATE: 20200721
